FAERS Safety Report 9606699 (Version 2)
Quarter: 2014Q2

REPORT INFORMATION
  Report Type: Spontaneous
  Country: US (occurrence: US)
  Receive Date: 20131008
  Receipt Date: 20140519
  Transmission Date: 20141212
  Serious: No
  Sender: FDA-Public Use
  Company Number: US-AMGEN-USASP2013065487

PATIENT
  Age: 75 Year
  Sex: Female
  Weight: 70.75 kg

DRUGS (6)
  1. PROLIA [Suspect]
     Indication: OSTEOPOROSIS POSTMENOPAUSAL
     Dosage: 60 MG, UNK
     Route: 030
     Dates: start: 201307
  2. ACETYLSALICYLIC ACID [Concomitant]
     Route: 065
  3. GLUCOSAMINE [Concomitant]
     Route: 065
  4. OMEGA 3                            /01333901/ [Concomitant]
     Route: 065
  5. MVI                                /01825701/ [Concomitant]
     Route: 065
  6. COQ10                              /00517201/ [Concomitant]
     Route: 065

REACTIONS (3)
  - Injection site rash [Not Recovered/Not Resolved]
  - Incorrect route of drug administration [Unknown]
  - Rash [Recovered/Resolved]
